FAERS Safety Report 8340739-9 (Version None)
Quarter: 2012Q1

REPORT INFORMATION
  Report Type: 
  Country: None (occurrence: None)
  Receive Date: 20120329
  Receipt Date: 20090917
  Transmission Date: 20120608
  Serious: Yes (Other)
  Sender: FDA-Public Use
  Company Number: PHEH2009US10669

PATIENT
  Age: 89 Year
  Sex: Female
  Weight: 75 kg

DRUGS (2)
  1. EXELON [Suspect]
     Indication: DEMENTIA
     Dosage: 4.6 MG, /24 HR., TOPICAL
     Route: 061
     Dates: start: 20090901, end: 20090908
  2. PREDNISONE [Suspect]

REACTIONS (2)
  - CONFUSIONAL STATE [None]
  - DEPRESSION [None]
